FAERS Safety Report 5358530-4 (Version None)
Quarter: 2007Q2

REPORT INFORMATION
  Report Type: 
  Country: None (occurrence: None)
  Receive Date: 20070613
  Receipt Date: 20070613
  Transmission Date: 20071010
  Serious: Yes (Other)
  Sender: FDA-Public Use
  Company Number: None

PATIENT
  Age: 27 Year
  Sex: Female
  Weight: 61.2356 kg

DRUGS (1)
  1. DROSPIRENONE + ETHINYL ESTRADIOL  3 MG/0.03 MG  YASMIN-BERLEX [Suspect]
     Indication: CONTRACEPTION
     Dosage: 1 TABLET PER DAY PO
     Route: 048
     Dates: start: 20050601, end: 20070612

REACTIONS (1)
  - SKIN DEPIGMENTATION [None]
